FAERS Safety Report 21584871 (Version 3)
Quarter: 2023Q1

REPORT INFORMATION
  Report Type: Report from Study
  Country: US (occurrence: US)
  Receive Date: 20221111
  Receipt Date: 20230227
  Transmission Date: 20230417
  Serious: No
  Sender: FDA-Public Use
  Company Number: US-ABBVIE-22K-163-4420876-00

PATIENT
  Sex: Female

DRUGS (7)
  1. SKYRIZI [Suspect]
     Active Substance: RISANKIZUMAB-RZAA
     Indication: Psoriasis
     Dosage: WEEK 0?LAST ADMIN DATE-2022?STRENGTH 150 MG
     Route: 058
     Dates: start: 20220404, end: 202211
  2. SKYRIZI [Suspect]
     Active Substance: RISANKIZUMAB-RZAA
     Indication: Psoriatic arthropathy
     Dosage: WEEK 4?FIRST AND LAST ADMIN DATES-2022?STRENGTH 150 MG
     Route: 058
     Dates: start: 20220404
  3. SKYRIZI [Suspect]
     Active Substance: RISANKIZUMAB-RZAA
     Dosage: FORM STRENGTH 150MG?FIRST ADMIN DATE- 2022, LAST ADMIN DATE-2022?STRENGTH 150 MG
     Route: 058
     Dates: start: 20220404
  4. SKYRIZI [Suspect]
     Active Substance: RISANKIZUMAB-RZAA
     Dosage: FIRST AND LAST ADMIN DATES-2022?STRENGTH 150 MG
     Route: 058
  5. Pfizer/BioNTech [Concomitant]
     Indication: COVID-19 immunisation
     Dosage: 1ST DOSE ?ONE IN ONCE
     Route: 030
     Dates: start: 20210323, end: 20210323
  6. Pfizer/BioNTech [Concomitant]
     Indication: COVID-19 immunisation
     Dosage: 2ND DOSE ?ONE IN ONCE
     Route: 030
     Dates: start: 20210413, end: 20210413
  7. Pfizer/BioNTech [Concomitant]
     Indication: COVID-19 immunisation
     Dosage: 3RD DOSE ?ONE IN ONCE
     Route: 030
     Dates: start: 20211221, end: 20211221

REACTIONS (13)
  - Off label use [Unknown]
  - Onycholysis [Unknown]
  - Nail disorder [Unknown]
  - Nail discolouration [Unknown]
  - Onychomadesis [Unknown]
  - Drug ineffective [Unknown]
  - Nail pitting [Unknown]
  - Pain of skin [Unknown]
  - Psoriasis [Unknown]
  - Nail disorder [Not Recovered/Not Resolved]
  - Arthropathy [Not Recovered/Not Resolved]
  - Psoriatic arthropathy [Unknown]
  - Onychomadesis [Unknown]
